FAERS Safety Report 9370423 (Version 2)
Quarter: 2013Q3

REPORT INFORMATION
  Report Type: Spontaneous
  Country: US (occurrence: US)
  Receive Date: 20130626
  Receipt Date: 20130709
  Transmission Date: 20140515
  Serious: Yes (Hospitalization, Other)
  Sender: FDA-Public Use
  Company Number: US-PFIZER INC-2013190432

PATIENT
  Age: 89 Year
  Sex: Female
  Weight: 86.17 kg

DRUGS (4)
  1. LYRICA [Suspect]
     Indication: FIBROMYALGIA
     Dosage: 75 MG DAILY
  2. KETOPROFEN [Suspect]
     Indication: INFLAMMATION
     Dosage: 75 MG, 2X/DAY
     Dates: start: 1998, end: 2011
  3. KETOPROFEN [Suspect]
     Dosage: 75 MG TWO TIMES A DAY ON ONE DAY AND 75 MG OTHER DAY
     Dates: start: 2011, end: 201305
  4. FLUTICASONE [Concomitant]
     Indication: SINUS DISORDER
     Dosage: ONE SPRAY IN EACH NOSTRIL DAILY
     Route: 045

REACTIONS (6)
  - Anaemia macrocytic [Unknown]
  - Bronchitis [Unknown]
  - Chronic obstructive pulmonary disease [Unknown]
  - Lung disorder [Unknown]
  - Dyspnoea [Unknown]
  - Hypoacusis [Unknown]
